FAERS Safety Report 18604090 (Version 1)
Quarter: 2020Q4

REPORT INFORMATION
  Report Type: Spontaneous
  Country: US (occurrence: US)
  Receive Date: 20201211
  Receipt Date: 20201211
  Transmission Date: 20210114
  Serious: Yes (Hospitalization)
  Sender: FDA-Public Use
  Company Number: None

PATIENT
  Age: 68 Year
  Sex: Female
  Weight: 113.8 kg

DRUGS (1)
  1. BAMLANIVIMAB. [Suspect]
     Active Substance: BAMLANIVIMAB
     Indication: COVID-19
     Route: 042
     Dates: start: 20201210, end: 20201210

REACTIONS (6)
  - Feeling hot [None]
  - Feeling abnormal [None]
  - Eructation [None]
  - Infusion related reaction [None]
  - Blood pressure decreased [None]
  - Hyperhidrosis [None]

NARRATIVE: CASE EVENT DATE: 20201210
